FAERS Safety Report 10685961 (Version 3)
Quarter: 2015Q3

REPORT INFORMATION
  Report Type: Spontaneous
  Country: US (occurrence: US)
  Receive Date: 20141231
  Receipt Date: 20150727
  Transmission Date: 20151125
  Serious: Yes (Other)
  Sender: FDA-Public Use
  Company Number: US-GLAXOSMITHKLINE INC.-US2014GSK044450

PATIENT
  Sex: Male

DRUGS (2)
  1. VOTRIENT [Suspect]
     Active Substance: PAZOPANIB HYDROCHLORIDE
     Indication: NEOPLASM
  2. VOTRIENT [Suspect]
     Active Substance: PAZOPANIB HYDROCHLORIDE
     Indication: NEOPLASM MALIGNANT
     Dosage: 200 MG, UNK
     Dates: start: 20121130, end: 201311

REACTIONS (10)
  - Arthritis [Unknown]
  - Neoplasm recurrence [Unknown]
  - Hip fracture [Unknown]
  - Malaise [Unknown]
  - Drug ineffective [Unknown]
  - Decreased appetite [Unknown]
  - Mobility decreased [Unknown]
  - Cancer surgery [Unknown]
  - Cervical vertebral fracture [Unknown]
  - Weight decreased [Unknown]
